FAERS Safety Report 24169850 (Version 2)
Quarter: 2024Q3

REPORT INFORMATION
  Report Type: Report from Study
  Country: CN (occurrence: CN)
  Receive Date: 20240803
  Receipt Date: 20240903
  Transmission Date: 20241017
  Serious: Yes (Hospitalization, Other)
  Sender: BAXTER
  Company Number: CN-BAXTER-2024BAX013648

PATIENT
  Age: 55 Year
  Sex: Male
  Weight: 60 kg

DRUGS (23)
  1. CYCLOPHOSPHAMIDE [Suspect]
     Active Substance: CYCLOPHOSPHAMIDE
     Indication: Diffuse large B-cell lymphoma stage I
     Dosage: 1215 MG, EVERY 3 WEEKS
     Route: 042
     Dates: start: 20231122, end: 20240216
  2. CYCLOPHOSPHAMIDE [Suspect]
     Active Substance: CYCLOPHOSPHAMIDE
     Dosage: 1132.5 MG, EVERY 3 WEEKS
     Route: 042
     Dates: start: 20240408, end: 20240408
  3. MESNA [Suspect]
     Active Substance: MESNA
     Indication: Urinary tract disorder prophylaxis
     Dosage: 400 MG, TOTAL
     Route: 065
     Dates: start: 20231122, end: 20240408
  4. EPCORITAMAB [Suspect]
     Active Substance: EPCORITAMAB
     Indication: Diffuse large B-cell lymphoma stage I
     Dosage: 48 MG C1 (STEP-UP), CYCLES 2 - 4 (21-DAY CYCLE, WEEKLY DOSE), C5 - 8 (21-DAY CYCLE, EVERY 3 WEEKS) P
     Route: 058
     Dates: start: 20231122, end: 20240216
  5. RITUXIMAB [Suspect]
     Active Substance: RITUXIMAB
     Indication: Diffuse large B-cell lymphoma stage I
     Dosage: 607.5 MG, EVERY 3 WEEKS
     Route: 042
     Dates: start: 20231121, end: 20240216
  6. RITUXIMAB [Suspect]
     Active Substance: RITUXIMAB
     Dosage: 566.3 MG, EVERY 3 WEEKS
     Route: 042
     Dates: start: 20240408, end: 20240408
  7. VINCRISTINE [Suspect]
     Active Substance: VINCRISTINE
     Indication: Diffuse large B-cell lymphoma stage I
     Dosage: 2 MG, EVERY 3 WEEKS
     Route: 042
     Dates: start: 20231122, end: 20240216
  8. VINCRISTINE [Suspect]
     Active Substance: VINCRISTINE
     Dosage: 2 MG, EVERY 3 WEEKS
     Route: 042
     Dates: start: 20240408, end: 20240408
  9. DOXORUBICIN [Suspect]
     Active Substance: DOXORUBICIN
     Indication: Diffuse large B-cell lymphoma stage I
     Dosage: 81 MG, EVERY 3 WEEKS
     Route: 042
     Dates: start: 20231122, end: 20240216
  10. DOXORUBICIN [Suspect]
     Active Substance: DOXORUBICIN
     Dosage: 75.5 MG, EVERY 3 WEEKS
     Route: 042
     Dates: start: 20240408, end: 20240408
  11. PREDNISONE [Suspect]
     Active Substance: PREDNISONE
     Indication: Diffuse large B-cell lymphoma stage I
     Dosage: 100 MG, DAILY C1-6, DAY 1-5, EVERY 1 DAYS
     Route: 048
     Dates: start: 20231122, end: 20240220
  12. PREDNISONE [Suspect]
     Active Substance: PREDNISONE
     Dosage: 100 MG DAILY C1-6, DAY 1-5, EVERY 1 DAYS
     Route: 048
     Dates: start: 20240408, end: 20240412
  13. INSULIN GLARGINE [Concomitant]
     Active Substance: INSULIN GLARGINE
     Indication: Diabetes mellitus
     Dosage: 8 U, EVERY 1 DAYS
     Route: 065
     Dates: start: 20230829
  14. INSULIN ASPART [Concomitant]
     Active Substance: INSULIN ASPART
     Indication: Diabetes mellitus
     Dosage: 10 U, 3/DAYS
     Route: 065
     Dates: start: 20230829
  15. ENTECAVIR [Concomitant]
     Active Substance: ENTECAVIR
     Indication: Antiviral prophylaxis
     Dosage: 0.5 MG, EVERY 1 DAYS
     Route: 065
     Dates: start: 20231112
  16. SULFAMETHOXAZOLE [Concomitant]
     Active Substance: SULFAMETHOXAZOLE
     Indication: Antifungal prophylaxis
     Dosage: 0.96 G, 3/WEEKS
     Route: 065
     Dates: start: 20231121
  17. ACETAMINOPHEN [Concomitant]
     Active Substance: ACETAMINOPHEN
     Indication: Prophylaxis
     Dosage: 1 G, TOTAL
     Route: 065
     Dates: start: 20240104, end: 20240216
  18. APREPITANT [Concomitant]
     Active Substance: APREPITANT
     Indication: Prophylaxis of nausea and vomiting
     Dosage: 1 GRAIN, EVERY 1 DAYS
     Route: 065
     Dates: start: 20231122
  19. ONDANSETRON [Concomitant]
     Active Substance: ONDANSETRON
     Indication: Prophylaxis of nausea and vomiting
     Dosage: 8 MG, 3/DAYS
     Route: 065
     Dates: start: 20231122
  20. PROMETHAZINE HYDROCHLORIDE [Concomitant]
     Active Substance: PROMETHAZINE HYDROCHLORIDE
     Indication: Prophylaxis
     Dosage: 25 MG, TOTAL
     Route: 065
     Dates: start: 20231121, end: 20240408
  21. CALCIUM CARBONATE\CHOLECALCIFEROL [Concomitant]
     Active Substance: CALCIUM CARBONATE\CHOLECALCIFEROL
     Indication: Prophylaxis
     Dosage: 0.6 G, EVERY 1 DAYS
     Route: 065
     Dates: start: 20231122
  22. CALCIUM CARBONATE\CHOLECALCIFEROL [Concomitant]
     Active Substance: CALCIUM CARBONATE\CHOLECALCIFEROL
     Dosage: 0.6 G, EVERY 1 DAYS
     Route: 065
     Dates: start: 20231213, end: 20231217
  23. CALCIUM CARBONATE\CHOLECALCIFEROL [Concomitant]
     Active Substance: CALCIUM CARBONATE\CHOLECALCIFEROL
     Dosage: 0.6 G, EVERY 1 DAYS
     Route: 065
     Dates: start: 20240104

REACTIONS (2)
  - Pneumonia bacterial [Recovered/Resolved]
  - Dermatitis allergic [Recovered/Resolved]

NARRATIVE: CASE EVENT DATE: 20240215
